FAERS Safety Report 4390670-9 (Version None)
Quarter: 2004Q2

REPORT INFORMATION
  Report Type: 
  Country: None (occurrence: None)
  Receive Date: 20040630
  Receipt Date: 20040621
  Transmission Date: 20050107
  Serious: Yes (Hospitalization, Disabling)
  Sender: FDA-Public Use
  Company Number: HQ0027222JAN2002

PATIENT
  Age: 47 Year
  Sex: Female

DRUGS (36)
  1. DIMETAPP [Suspect]
     Indication: HYPERSENSITIVITY
     Dosage: ORAL
     Route: 048
  2. DIMETAPP [Suspect]
     Indication: INFLUENZA
     Dosage: ORAL
     Route: 048
  3. DIMETAPP [Suspect]
     Indication: NASOPHARYNGITIS
     Dosage: ORAL
     Route: 048
  4. DIMETAPP [Suspect]
     Indication: SINUS CONGESTION
     Dosage: ORAL
     Route: 048
  5. ALKA-SELTZER PLUS COLD (ACETYLSALICYLIC ACID/CHLORPHENAMINE MALEATE/PH [Suspect]
     Indication: HYPERSENSITIVITY
     Dosage: ORAL
     Route: 048
  6. ALKA-SELTZER PLUS COLD (ACETYLSALICYLIC ACID/CHLORPHENAMINE MALEATE/PH [Suspect]
     Indication: INFLUENZA
     Dosage: ORAL
     Route: 048
  7. ALKA-SELTZER PLUS COLD (ACETYLSALICYLIC ACID/CHLORPHENAMINE MALEATE/PH [Suspect]
     Indication: NASOPHARYNGITIS
     Dosage: ORAL
     Route: 048
  8. ALKA-SELTZER PLUS COLD (ACETYLSALICYLIC ACID/CHLORPHENAMINE MALEATE/PH [Suspect]
     Indication: SINUS CONGESTION
     Dosage: ORAL
     Route: 048
  9. AMI-TEX LA (GUAIFENESIN/PHENYLPROPANOLAMINE HYDROCHLORIDE, ) [Suspect]
     Indication: HYPERSENSITIVITY
     Dosage: ORAL
     Route: 048
  10. AMI-TEX LA (GUAIFENESIN/PHENYLPROPANOLAMINE HYDROCHLORIDE, ) [Suspect]
     Indication: INFLUENZA
     Dosage: ORAL
     Route: 048
  11. AMI-TEX LA (GUAIFENESIN/PHENYLPROPANOLAMINE HYDROCHLORIDE, ) [Suspect]
     Indication: NASOPHARYNGITIS
     Dosage: ORAL
     Route: 048
  12. AMI-TEX LA (GUAIFENESIN/PHENYLPROPANOLAMINE HYDROCHLORIDE, ) [Suspect]
     Indication: SINUS CONGESTION
     Dosage: ORAL
     Route: 048
  13. CONTAC [Suspect]
     Indication: HYPERSENSITIVITY
     Dosage: ORAL
     Route: 048
  14. CONTAC [Suspect]
     Indication: INFLUENZA
     Dosage: ORAL
     Route: 048
  15. CONTAC [Suspect]
     Indication: NASOPHARYNGITIS
     Dosage: ORAL
     Route: 048
  16. CONTAC [Suspect]
     Indication: SINUS CONGESTION
     Dosage: ORAL
     Route: 048
  17. DEXATRIM (CAFFEINE/PHENYLPROPANOLAMINE HYDROCHLORIDE, ) [Suspect]
     Dosage: ORAL
     Route: 048
  18. ENTEX LA (GUAIFENESIN/PHENYLPROPANOLAMINE HYDROCHLORIDE, ) [Suspect]
     Indication: HYPERSENSITIVITY
     Dosage: ORAL
     Route: 048
  19. ENTEX LA (GUAIFENESIN/PHENYLPROPANOLAMINE HYDROCHLORIDE, ) [Suspect]
     Indication: INFLUENZA
     Dosage: ORAL
     Route: 048
  20. ENTEX LA (GUAIFENESIN/PHENYLPROPANOLAMINE HYDROCHLORIDE, ) [Suspect]
     Indication: NASOPHARYNGITIS
     Dosage: ORAL
     Route: 048
  21. ENTEX LA (GUAIFENESIN/PHENYLPROPANOLAMINE HYDROCHLORIDE, ) [Suspect]
     Indication: SINUS CONGESTION
     Dosage: ORAL
     Route: 048
  22. ROBITUSSIN CF (GUAIFENESIN/DEXTROMETHORPHAN/PHENYLPROPANOLAMINE, SYRUP [Suspect]
     Indication: HYPERSENSITIVITY
     Dosage: ^3 TABLESPOONS PER 24 HOUR PERIOD^, ORAL
     Route: 048
  23. ROBITUSSIN CF (GUAIFENESIN/DEXTROMETHORPHAN/PHENYLPROPANOLAMINE, SYRUP [Suspect]
     Indication: INFLUENZA LIKE ILLNESS
     Dosage: ^3 TABLESPOONS PER 24 HOUR PERIOD^, ORAL
     Route: 048
  24. ROBITUSSIN CF (GUAIFENESIN/DEXTROMETHORPHAN/PHENYLPROPANOLAMINE, SYRUP [Suspect]
     Indication: NASOPHARYNGITIS
     Dosage: ^3 TABLESPOONS PER 24 HOUR PERIOD^, ORAL
     Route: 048
  25. ROBITUSSIN CF (GUAIFENESIN/DEXTROMETHORPHAN/PHENYLPROPANOLAMINE, SYRUP [Suspect]
     Indication: SINUS CONGESTION
     Dosage: ^3 TABLESPOONS PER 24 HOUR PERIOD^, ORAL
     Route: 048
  26. TAVIST-D (CLEMASTINE FUMARATE/PHENYLPROPANOLAMINE HYDROCHLORIDE, ) [Suspect]
     Indication: HYPERSENSITIVITY
     Dosage: ^2 PER DAY^, ORAL
     Route: 048
  27. TAVIST-D (CLEMASTINE FUMARATE/PHENYLPROPANOLAMINE HYDROCHLORIDE, ) [Suspect]
     Indication: INFLUENZA
     Dosage: ^2 PER DAY^, ORAL
     Route: 048
  28. TAVIST-D (CLEMASTINE FUMARATE/PHENYLPROPANOLAMINE HYDROCHLORIDE, ) [Suspect]
     Indication: NASOPHARYNGITIS
     Dosage: ^2 PER DAY^, ORAL
     Route: 048
  29. TAVIST-D (CLEMASTINE FUMARATE/PHENYLPROPANOLAMINE HYDROCHLORIDE, ) [Suspect]
     Indication: SINUS CONGESTION
     Dosage: ^2 PER DAY^, ORAL
     Route: 048
  30. TRIAMINIC SRT [Suspect]
     Indication: INFLUENZA
     Dosage: ^2 TO 3 TABLESPOONS WITHIN 24 HOUR PERIOD^, ORAL
     Route: 048
  31. TRIAMINIC SRT [Suspect]
     Indication: NASOPHARYNGITIS
     Dosage: ^2 TO 3 TABLESPOONS WITHIN 24 HOUR PERIOD^, ORAL
     Route: 048
  32. UNSPECIFIED DECONGESTANT (UNSPECIFIED DECONGESTANT, UNSPEC) [Suspect]
     Indication: HYPERSENSITIVITY
     Dosage: ORAL
     Route: 048
  33. UNSPECIFIED DECONGESTANT (UNSPECIFIED DECONGESTANT, UNSPEC) [Suspect]
     Indication: INFLUENZA
     Dosage: ORAL
     Route: 048
  34. UNSPECIFIED DECONGESTANT (UNSPECIFIED DECONGESTANT, UNSPEC) [Suspect]
     Indication: NASOPHARYNGITIS
     Dosage: ORAL
     Route: 048
  35. UNSPECIFIED DECONGESTANT (UNSPECIFIED DECONGESTANT, UNSPEC) [Suspect]
     Indication: SINUS CONGESTION
     Dosage: ORAL
     Route: 048
  36. MICRONASE [Concomitant]

REACTIONS (7)
  - CEREBROVASCULAR ACCIDENT [None]
  - ELECTROCARDIOGRAM T WAVE ABNORMAL [None]
  - HEMIPLEGIA [None]
  - HYPERTENSION [None]
  - MYOCARDIAL INFARCTION [None]
  - SINUS TACHYCARDIA [None]
  - VENTRICULAR HYPERTROPHY [None]
